FAERS Safety Report 10033299 (Version 2)
Quarter: 2014Q2

REPORT INFORMATION
  Report Type: Spontaneous
  Country: IT (occurrence: IT)
  Receive Date: 20140324
  Receipt Date: 20140507
  Transmission Date: 20141212
  Serious: Yes (Hospitalization)
  Sender: FDA-Public Use
  Company Number: IT-BRISTOL-MYERS SQUIBB COMPANY-20542627

PATIENT
  Age: 82 Year
  Sex: Female

DRUGS (7)
  1. ABILIFY [Suspect]
     Indication: PSYCHOMOTOR HYPERACTIVITY
     Route: 048
     Dates: start: 20130408, end: 20130412
  2. DONEPEZIL [Concomitant]
     Dosage: 10MG TABS.
     Route: 048
  3. EBIXA [Concomitant]
     Dosage: TABS.
     Route: 048
  4. QUINAZIL [Concomitant]
     Dosage: TAB
     Route: 048
  5. CARDIOASPIRIN [Concomitant]
     Route: 048
  6. REMERON [Concomitant]
     Dosage: 30MG FORMULATION
     Route: 048
  7. MELATONIN [Concomitant]
     Route: 048

REACTIONS (2)
  - Sopor [Recovering/Resolving]
  - Off label use [Unknown]
